FAERS Safety Report 7903895-X (Version None)
Quarter: 2011Q4

REPORT INFORMATION
  Report Type: 
  Country: None (occurrence: None)
  Receive Date: 20111109
  Receipt Date: 20111031
  Transmission Date: 20120403
  Serious: Yes (Hospitalization)
  Sender: FDA-Public Use
  Company Number: US-ASTRAZENECA-2011SE65645

PATIENT
  Age: 58 Year
  Sex: Male

DRUGS (14)
  1. LEVOTHYROXINE SODIUM [Concomitant]
     Route: 048
  2. ENALAPRIL MALEATE [Concomitant]
  3. POTASSIUM CHLORIDE [Concomitant]
     Route: 048
  4. PROAIR HFA [Concomitant]
     Dosage: 108 (90 BASE) PRN
     Route: 055
  5. CALCITRIOL [Concomitant]
     Route: 048
  6. ATENOLOL [Concomitant]
     Route: 048
  7. ADVAIR DISKUS 100/50 [Concomitant]
     Dosage: 250/50 MCG/DOSE BID
     Route: 055
  8. AMLODIPINE BESYLATE [Concomitant]
  9. CALCIUM D [Concomitant]
     Dosage: 600/20 OMG-UNIT TID
     Route: 048
  10. LOMOTIL [Concomitant]
     Dosage: 2.5-0.025 MG
     Route: 048
  11. VANDETANIB [Suspect]
     Indication: THYROID CANCER
     Route: 048
  12. XANAX [Concomitant]
     Route: 048
  13. VANDETANIB [Suspect]
     Route: 048
  14. INDOMETHACIN [Concomitant]

REACTIONS (1)
  - RENAL FAILURE [None]
